FAERS Safety Report 7647389-8 (Version None)
Quarter: 2011Q3

REPORT INFORMATION
  Report Type: 
  Country: None (occurrence: None)
  Receive Date: 20110726
  Receipt Date: 20110711
  Transmission Date: 20111222
  Serious: Yes (Death)
  Sender: FDA-Public Use
  Company Number: TCI2011A02332

PATIENT
  Age: 62 Year
  Sex: Male

DRUGS (4)
  1. ACTOS [Suspect]
     Indication: TYPE 2 DIABETES MELLITUS
     Dosage: 15 MG (15 MG, 1 D), PER ORAL
     Route: 048
     Dates: start: 20081212
  2. EPADEL-S (ETHYL ICOSAPENTATE) [Concomitant]
  3. FAMOTIDINE [Concomitant]
  4. BEZOTOL SR (BEZAFIBRATE) [Concomitant]

REACTIONS (3)
  - SUDDEN DEATH [None]
  - COMPLETED SUICIDE [None]
  - ELECTROCARDIOGRAM ST-T CHANGE [None]
